FAERS Safety Report 9402361 (Version 1)
Quarter: 2013Q3

REPORT INFORMATION
  Report Type: Spontaneous
  Country: US (occurrence: US)
  Receive Date: 20130716
  Receipt Date: 20130716
  Transmission Date: 20140515
  Serious: Yes (Other)
  Sender: FDA-Public Use
  Company Number: US-PFIZER INC-2013206180

PATIENT
  Age: 70 Year
  Sex: Male

DRUGS (2)
  1. MS CONTIN [Suspect]
     Indication: PAIN
     Dosage: 120 MG, 1X/DAY
     Route: 048
  2. MORPHINE SULFATE [Suspect]
     Indication: PAIN
     Dosage: UNK
     Route: 048

REACTIONS (5)
  - Overdose [Recovered/Resolved]
  - Depressed level of consciousness [Recovered/Resolved]
  - Screaming [Recovered/Resolved]
  - Blood pressure decreased [Unknown]
  - Tremor [Recovered/Resolved]
